FAERS Safety Report 7925217 (Version 2)
Quarter: 2012Q4

REPORT INFORMATION
  Report Type: 
  Country: US (occurrence: US)
  Receive Date: 20110502
  Receipt Date: 20121120
  Transmission Date: 20130627
  Serious: No
  Sender: FDA-Public Use
  Company Number: US-ASTRAZENECA-2010SE30313

PATIENT
  Age: 52 Year
  Sex: Male

DRUGS (2)
  1. NEXIUM [Suspect]
     Dosage: DAILY
     Route: 048
  2. UNSPECIFIED MEDICATIONS [Suspect]
     Route: 065

REACTIONS (6)
  - Burning sensation [Unknown]
  - Pain [Unknown]
  - Dyspepsia [Unknown]
  - Dyspepsia [Unknown]
  - Insomnia [Unknown]
  - Drug dose omission [Unknown]
